FAERS Safety Report 8609975-8 (Version None)
Quarter: 2012Q3

REPORT INFORMATION
  Report Type: 
  Country: None (occurrence: None)
  Receive Date: 20120822
  Receipt Date: 20120808
  Transmission Date: 20120928
  Serious: Yes (Other)
  Sender: FDA-Public Use
  Company Number: GB-MYLANLABS-2012S1016690

PATIENT
  Sex: Male
  Weight: 3.1 kg

DRUGS (6)
  1. TENOFOVIR DISOPROXIL FUMARATE [Suspect]
     Route: 064
  2. RALTEGRAVIR [Suspect]
     Route: 064
  3. LAMIVUDINE [Suspect]
     Route: 064
  4. LOPINAVIR/RITONAVIR [Suspect]
     Route: 064
  5. ZIDOVUDINE [Suspect]
     Route: 064
  6. NEVIRAPINE [Suspect]
     Route: 064

REACTIONS (1)
  - VOLVULUS [None]
